FAERS Safety Report 5205889-4 (Version None)
Quarter: 2007Q1

REPORT INFORMATION
  Report Type: 
  Country: None (occurrence: None)
  Receive Date: 20070111
  Receipt Date: 20070102
  Transmission Date: 20070707
  Serious: Yes (Hospitalization)
  Sender: FDA-Public Use
  Company Number: 2007CG00017

PATIENT
  Age: 78 Year
  Sex: Female

DRUGS (6)
  1. ATACAND [Suspect]
     Indication: CARDIAC FAILURE
     Route: 048
     Dates: start: 20060801
  2. PERINDOPRIL ERBUMINE [Suspect]
     Indication: CARDIAC FAILURE
     Route: 048
     Dates: start: 20060801
  3. ALDACTONE [Suspect]
     Indication: CARDIAC FAILURE
     Route: 048
     Dates: start: 20060801
  4. OMEPRAZOLE [Concomitant]
     Indication: GASTRITIS
     Route: 048
  5. DESLORATADINE [Concomitant]
     Indication: RHINITIS SEASONAL
     Route: 048
  6. PREVISCAN [Concomitant]
     Route: 048

REACTIONS (5)
  - DIZZINESS [None]
  - DYSPNOEA [None]
  - HYPOTENSION [None]
  - OEDEMA PERIPHERAL [None]
  - RIGHT VENTRICULAR FAILURE [None]
